FAERS Safety Report 13644710 (Version 1)
Quarter: 2017Q2

REPORT INFORMATION
  Report Type: Spontaneous
  Country: US (occurrence: US)
  Receive Date: 20170612
  Receipt Date: 20170612
  Transmission Date: 20170830
  Serious: No
  Sender: FDA-Public Use
  Company Number: US-ROCHE-1345319

PATIENT
  Sex: Female

DRUGS (16)
  1. ADVAIR HFA [Concomitant]
     Active Substance: FLUTICASONE PROPIONATE\SALMETEROL XINAFOATE
  2. CLONAZEPAM. [Concomitant]
     Active Substance: CLONAZEPAM
     Route: 065
  3. NEXIUM [Concomitant]
     Active Substance: ESOMEPRAZOLE MAGNESIUM
  4. ATROVENT [Concomitant]
     Active Substance: IPRATROPIUM BROMIDE
  5. ALBUTEROL. [Concomitant]
     Active Substance: ALBUTEROL
  6. ZYRTEC [Concomitant]
     Active Substance: CETIRIZINE HYDROCHLORIDE
  7. SERTRALINE [Concomitant]
     Active Substance: SERTRALINE HYDROCHLORIDE
  8. FLONASE [Concomitant]
     Active Substance: FLUTICASONE PROPIONATE
  9. LOSARTAN. [Concomitant]
     Active Substance: LOSARTAN
  10. XELODA [Suspect]
     Active Substance: CAPECITABINE
     Indication: GASTRIC CANCER
     Dosage: QD DAY OF RADIATION
     Route: 048
     Dates: start: 20131009
  11. PROAIR HFA [Concomitant]
     Active Substance: ALBUTEROL SULFATE
  12. CRANBERRY. [Concomitant]
     Active Substance: CRANBERRY
  13. SINGULAIR [Concomitant]
     Active Substance: MONTELUKAST SODIUM
  14. FISH OIL [Concomitant]
     Active Substance: FISH OIL
  15. LASIX [Concomitant]
     Active Substance: FUROSEMIDE
  16. PRAVASTATIN. [Concomitant]
     Active Substance: PRAVASTATIN

REACTIONS (2)
  - Vomiting [Unknown]
  - Diarrhoea [Unknown]
